FAERS Safety Report 6515354-X (Version None)
Quarter: 2009Q4

REPORT INFORMATION
  Report Type: 
  Country: None (occurrence: None)
  Receive Date: 20091223
  Receipt Date: 20091211
  Transmission Date: 20100525
  Serious: Yes (Life-Threatening, Hospitalization)
  Sender: FDA-Public Use
  Company Number: ES-BRISTOL-MYERS SQUIBB COMPANY-14758692

PATIENT
  Age: 68 Year
  Sex: Male
  Weight: 74 kg

DRUGS (11)
  1. CETUXIMAB [Suspect]
     Indication: NON-SMALL CELL LUNG CANCER
     Dosage: CETUXIMAB 5MG/ML;RECENT INF-11AUG09 INTERRUPTED ON 21AUG09
     Route: 042
     Dates: start: 20090804
  2. CISPLATIN [Suspect]
     Indication: NON-SMALL CELL LUNG CANCER
     Dosage: 3.5714 MG/M2;INTERRUPTED ON 21AUG09
     Route: 042
     Dates: start: 20090804
  3. GEMCITABINE [Suspect]
     Indication: NON-SMALL CELL LUNG CANCER
     Dosage: ON DAY 1, 8;RECENT INF-11AUG09;INTERRUPTED ON 21AUG09
     Route: 042
     Dates: start: 20090804
  4. BISOPROLOL [Concomitant]
  5. ACETYLSALICYLIC ACID [Concomitant]
  6. OMEPRAZOLE [Concomitant]
  7. METFORMIN HCL [Concomitant]
  8. APREPITANT [Concomitant]
  9. ONDANSETRON [Concomitant]
  10. DEXAMETHASONE TAB [Concomitant]
  11. METOCLOPRAMIDE HCL [Concomitant]

REACTIONS (4)
  - NEUTROPENIA [None]
  - PLATELET COUNT DECREASED [None]
  - PYREXIA [None]
  - RESPIRATORY TRACT INFECTION [None]
